FAERS Safety Report 10185711 (Version 1)
Quarter: 2014Q2

REPORT INFORMATION
  Report Type: Spontaneous
  Country: US (occurrence: US)
  Receive Date: 20140521
  Receipt Date: 20140521
  Transmission Date: 20141212
  Serious: No
  Sender: FDA-Public Use
  Company Number: US-TARO-2014P1003310

PATIENT
  Age: 12 Year
  Sex: 0

DRUGS (1)
  1. ETODOLAC CAPSULES 200 MG [Suspect]
     Route: 048

REACTIONS (1)
  - Dysphagia [Unknown]
